FAERS Safety Report 7617327-2 (Version None)
Quarter: 2011Q3

REPORT INFORMATION
  Report Type: 
  Country: None (occurrence: None)
  Receive Date: 20110718
  Receipt Date: 20110712
  Transmission Date: 20111222
  Serious: Yes (Death, Hospitalization)
  Sender: FDA-Public Use
  Company Number: PHHY2011US40043

PATIENT
  Sex: Female
  Weight: 94.785 kg

DRUGS (29)
  1. CALCIUM CARBONATE W/COLECALCIFEROL [Concomitant]
     Dosage: 1 DF, BID (600 MG -400)
     Route: 048
  2. THEOPHYLLINE [Concomitant]
     Dosage: 200 MG, BID
     Route: 048
  3. MUCINEX [Concomitant]
     Dosage: 600 MG, BID
     Route: 048
  4. SIMVASTATIN [Concomitant]
     Dosage: 40 MG, QD
     Route: 048
  5. RECLAST [Suspect]
     Indication: OSTEOPOROSIS
     Dosage: 5 MG/100 ML
     Route: 042
     Dates: start: 20100510
  6. ADVAIR DISKUS 100/50 [Concomitant]
     Dosage: 1 DF, Q12H (250-50 MCG)
  7. FORTICA [Concomitant]
     Dosage: 1 DF, QOD (200/DOSE ALTERNATING NOSTRILS)
  8. LORATADINE [Concomitant]
     Dosage: 10 MG, QD
     Route: 048
  9. PRILOSEC [Concomitant]
     Dosage: 20 MG, BID
     Route: 048
  10. PRILOSEC [Concomitant]
     Dosage: 2 DF, (90 MCG) EVERY 4-6 HOURS AD NEEDED
  11. PROVERA [Concomitant]
     Dosage: 5 MG, EVERY DAY
     Route: 048
  12. VERAMYST [Concomitant]
     Dosage: 27.5 UG, AS DIRECTED
  13. CLONIDINE HYDROCHLORIDE [Concomitant]
     Dosage: 1 G, BID AND 1 DF IF DIASTOLIC IS OVER 95 (0.1 MG)
  14. ACETAMINOPHEN [Concomitant]
     Dosage: 2 DF, BID (500 MG)
     Route: 048
  15. ZITHROMAX [Concomitant]
     Dosage: 1 DF, QD
     Route: 048
  16. POTASSIUM CHLORIDE [Concomitant]
     Dosage: 20 MEQ, BID
     Route: 048
  17. SPIRIVA [Concomitant]
     Dosage: 1 DF, BID
  18. PROVENTIL [Concomitant]
     Dosage: 2 DF, UNK
  19. STOOL SOFTENER [Concomitant]
     Dosage: 240 MG, BID
     Route: 048
  20. ZITHROMAX [Concomitant]
     Dosage: 2 DF, (500 MG) EVERY DAY FIR 1 DAY
     Route: 048
  21. ASPIRIN [Concomitant]
     Dosage: 81 MG, QD
     Route: 048
  22. TESSALON [Concomitant]
     Dosage: 100 MG, BID
     Route: 048
  23. ZANTAC [Concomitant]
     Dosage: 150 MG, BID
     Route: 048
  24. ACCOLATE [Concomitant]
     Dosage: 20 MG, BID
     Route: 048
  25. DIAMOX SRC [Concomitant]
     Dosage: 500 MG, Q12H
     Route: 048
  26. NASONEX [Concomitant]
     Dosage: 2 DF, (50 MCG EVERY DAY IN EACH NOSTRIL)
  27. OXYGEN [Concomitant]
     Dosage: 1 L, AT HOME OR 1 1/2 WITH INCREASED ACTIVITY AT HOME AND 2 LITRES WHEN OUT OF HOUSE
  28. PREDNISONE [Concomitant]
     Dosage: 5 MG, QOD
     Route: 048
  29. TUSSIONEX [Concomitant]
     Dosage: 1 TSP, Q12H (10-8MG/5ML

REACTIONS (4)
  - DYSPNOEA [None]
  - RESPIRATORY FAILURE [None]
  - PYREXIA [None]
  - DIARRHOEA [None]
